FAERS Safety Report 6814728-7 (Version None)
Quarter: 2010Q3

REPORT INFORMATION
  Report Type: 
  Country: None (occurrence: None)
  Receive Date: 20100702
  Receipt Date: 20100623
  Transmission Date: 20110219
  Serious: Yes (Disabling)
  Sender: FDA-Public Use
  Company Number: CA-ROCHE-652019

PATIENT
  Sex: Female
  Weight: 63.6 kg

DRUGS (5)
  1. BEVACIZUMAB [Suspect]
     Indication: BREAST CANCER
     Dosage: FORM: VIAL, DOSE: 15 MG/KG, LAST DOSE PRIOR TO EVENT ON 22 APR2009
     Route: 042
     Dates: end: 20090513
  2. TRASTUZUMAB [Suspect]
     Indication: BREAST CANCER
     Dosage: LOADING DOSE.
     Route: 042
  3. TRASTUZUMAB [Suspect]
     Dosage: FORM: VIAL, DOSE: 6 MG/KG, LAST DOSE PRIOR TO SAE ON 24 JUNE 2009. MAINTAINANCE DOSE.
     Route: 042
  4. CARBOPLATIN [Suspect]
     Indication: BREAST CANCER
     Dosage: FORM: VIAL, DOSE: 6 AUC, LAST DOSE PRIOR TO EVENT ON 01 APR2009
     Route: 042
  5. DOCETAXEL [Suspect]
     Indication: BREAST CANCER
     Dosage: FORM: VIAL, DOSE: 75 MG/M2, LAST DOSE PRIOR SAE. 01 APR 2009. FORM: VIALS.
     Route: 042

REACTIONS (1)
  - CORNEAL PERFORATION [None]
